FAERS Safety Report 4619221-8 (Version None)
Quarter: 2005Q2

REPORT INFORMATION
  Report Type: 
  Country: None (occurrence: None)
  Receive Date: 20050321
  Receipt Date: 20040920
  Transmission Date: 20051028
  Serious: Yes (Other)
  Sender: FDA-Public Use
  Company Number: 2004-09-1373

PATIENT
  Sex: Female
  Weight: 71.6683 kg

DRUGS (2)
  1. PEG-INTRON [Suspect]
     Indication: HEPATITIS C
     Dates: start: 20030401
  2. RIBAVIRIN [Suspect]
     Indication: HEPATITIS C
     Dates: start: 20030401

REACTIONS (5)
  - HYPERTHYROIDISM [None]
  - HYPOTENSION [None]
  - INJECTION SITE REACTION [None]
  - VIRAL LOAD INCREASED [None]
  - WEIGHT DECREASED [None]
